FAERS Safety Report 7509168-1 (Version None)
Quarter: 2011Q2

REPORT INFORMATION
  Report Type: 
  Country: None (occurrence: None)
  Receive Date: 20110519
  Receipt Date: 20110509
  Transmission Date: 20111010
  Serious: Yes (Hospitalization)
  Sender: FDA-Public Use
  Company Number: DSM-2011-00523

PATIENT
  Age: 81 Year
  Sex: Female

DRUGS (9)
  1. ATORVASTATIN CALCIUM [Concomitant]
  2. FORADIL (FORMOTEROL FUMARATE) (FORMOTEROL FUMARATE) [Concomitant]
  3. MIFLAZONE (BECLOMETASONE DIPROPIONATE) (BECLOMETASONE DIPROPIONATE) [Concomitant]
  4. HYPERIUM (RILMENIDINE) (RILMENIDINE) [Concomitant]
  5. AIROMIR (SALBUTAMOL) (SALBUTAMOL) [Concomitant]
  6. LASILIX (FUROSEMIDE) (FUROSEMIDE) [Concomitant]
  7. OLMESARTAN MEDOXOMIL [Suspect]
     Indication: HYPERTENSION
     Dosage: ORAL
     Route: 048
     Dates: start: 20060101, end: 20110207
  8. OLMESARTAN MEDOXOMIL [Suspect]
     Indication: HYPERTENSION
     Dosage: ORAL
     Route: 048
     Dates: start: 20110217, end: 20110219
  9. SINGULAIR (MONTELUKAST SODIUM) (MONTELUKAST SODIUM) [Concomitant]

REACTIONS (2)
  - HYPOXIA [None]
  - INTERSTITIAL LUNG DISEASE [None]
